FAERS Safety Report 15692983 (Version 4)
Quarter: 2019Q1

REPORT INFORMATION
  Report Type: Report from Study
  Country: US (occurrence: US)
  Receive Date: 20181206
  Receipt Date: 20190206
  Transmission Date: 20190417
  Serious: Yes (Other)
  Sender: FDA-Public Use
  Company Number: US-GILEAD-2018-0378317

PATIENT
  Age: 63 Year
  Sex: Female

DRUGS (1)
  1. AMBRISENTAN [Suspect]
     Active Substance: AMBRISENTAN
     Indication: PRODUCT USED FOR UNKNOWN INDICATION
     Dosage: 5 MG, QD
     Route: 065
     Dates: start: 20181207

REACTIONS (6)
  - Oedema [Unknown]
  - Cardiac failure congestive [Unknown]
  - Cardiac failure [Not Recovered/Not Resolved]
  - Insomnia [Unknown]
  - Blood pressure systolic increased [Unknown]
  - Swelling [Unknown]
